FAERS Safety Report 5171323-6 (Version None)
Quarter: 2006Q4

REPORT INFORMATION
  Report Type: 
  Country: None (occurrence: None)
  Receive Date: 20061213
  Receipt Date: 20051209
  Transmission Date: 20070319
  Serious: Yes (Other)
  Sender: FDA-Public Use
  Company Number: US-AMGEN-US160808

PATIENT
  Age: 36 Year
  Sex: Female

DRUGS (5)
  1. ENBREL [Suspect]
     Indication: PSORIASIS
     Dates: start: 20030101
  2. CYCLOSPORINE [Concomitant]
  3. SORIATANE [Concomitant]
  4. TRIAMCINOLONE [Concomitant]
  5. TRICOR [Concomitant]

REACTIONS (2)
  - LIPIDS INCREASED [None]
  - MALIGNANT MELANOMA IN SITU [None]
